FAERS Safety Report 10328016 (Version 2)
Quarter: 2014Q3

REPORT INFORMATION
  Report Type: Spontaneous
  Country: FR (occurrence: FR)
  Receive Date: 20140721
  Receipt Date: 20140814
  Transmission Date: 20150326
  Serious: Yes (Hospitalization)
  Sender: FDA-Public Use
  Company Number: FR-JNJFOC-20140704444

PATIENT
  Age: 35 Year
  Sex: Female

DRUGS (1)
  1. RISPERDAL [Suspect]
     Active Substance: RISPERIDONE
     Indication: PRODUCT USED FOR UNKNOWN INDICATION
     Dosage: 30 TABLETS, SINGLE INTAKE
     Route: 048
     Dates: start: 20140623, end: 20140623

REACTIONS (9)
  - Electrocardiogram ST segment elevation [Unknown]
  - Somnolence [Recovered/Resolved]
  - Vomiting [Unknown]
  - Sinus tachycardia [Recovered/Resolved]
  - Asthenia [Unknown]
  - Intentional overdose [Unknown]
  - Depressed level of consciousness [Unknown]
  - Fall [Unknown]
  - Electrocardiogram QT prolonged [Recovered/Resolved]

NARRATIVE: CASE EVENT DATE: 20140623
